FAERS Safety Report 21263923 (Version 1)
Quarter: 2022Q3

REPORT INFORMATION
  Report Type: Spontaneous
  Country: US (occurrence: US)
  Receive Date: 20220829
  Receipt Date: 20220829
  Transmission Date: 20221027
  Serious: Yes (Other)
  Sender: FDA-Public Use
  Company Number: US-NOVARTISPH-NVSC2022US191752

PATIENT
  Age: 67 Year
  Sex: Female

DRUGS (2)
  1. METHOTREXATE [Suspect]
     Active Substance: METHOTREXATE
     Indication: Mucous membrane pemphigoid
     Dosage: 10 MG, QW
     Route: 065
  2. TACROLIMUS [Concomitant]
     Active Substance: TACROLIMUS
     Indication: Mucous membrane pemphigoid
     Dosage: UNK (SWISH AND SPIT)
     Route: 065

REACTIONS (3)
  - Mucous membrane pemphigoid [Unknown]
  - Condition aggravated [Unknown]
  - Product use in unapproved indication [Unknown]
